FAERS Safety Report 14974056 (Version 1)
Quarter: 2018Q2

REPORT INFORMATION
  Report Type: Spontaneous
  Country: SE (occurrence: SE)
  Receive Date: 20180605
  Receipt Date: 20180605
  Transmission Date: 20180711
  Serious: Yes (Other)
  Sender: FDA-Public Use
  Company Number: SE-PFIZER INC-2018223595

PATIENT
  Age: 81 Year
  Sex: Female

DRUGS (24)
  1. LOSARTAN. [Concomitant]
     Active Substance: LOSARTAN
     Dosage: UNK
  2. OMEPRAZOL [Concomitant]
     Active Substance: OMEPRAZOLE
     Dosage: 1 DF, AS NEEDED
  3. FURIX RETARD [Concomitant]
     Active Substance: FUROSEMIDE
     Dosage: UNK
  4. CETIRIZIN [Concomitant]
     Active Substance: CETIRIZINE HYDROCHLORIDE
     Dosage: 1 DF, AS NEEDED
  5. DIMOR [Concomitant]
     Active Substance: LOPERAMIDE
     Dosage: 1 DF, AS NEEDED
  6. KETOCONAZOL [Concomitant]
     Active Substance: KETOCONAZOLE
     Dosage: 1 DF, AS NEEDED
  7. TRADOLAN [Concomitant]
     Active Substance: TRAMADOL
     Dosage: 1 DF, AS NEEDED
  8. INSUMAN /00646001/ [Concomitant]
     Active Substance: INSULIN HUMAN
     Dosage: UNK
  9. IDOTRIM [Suspect]
     Active Substance: TRIMETHOPRIM
     Indication: URINARY TRACT INFECTION
     Dosage: UNK
     Dates: end: 201803
  10. METFORMIN [Concomitant]
     Active Substance: METFORMIN HYDROCHLORIDE
     Dosage: UNK
  11. MONTELUKAST [Concomitant]
     Active Substance: MONTELUKAST SODIUM
     Dosage: UNK
  12. CORTIMYK [Concomitant]
     Dosage: 1 DF, AS NEEDED
  13. BRICANYL [Concomitant]
     Active Substance: TERBUTALINE SULFATE
     Dosage: 1 DF, AS NEEDED
  14. SYMBICORT [Concomitant]
     Active Substance: BUDESONIDE\FORMOTEROL FUMARATE DIHYDRATE
     Dosage: UNK
  15. OESTRING [Concomitant]
     Active Substance: ESTRADIOL
     Dosage: UNK
  16. FLUDENT [Concomitant]
     Active Substance: SODIUM FLUORIDE
     Dosage: 1 DF, AS NEEDED
  17. ALVEDON [Concomitant]
     Active Substance: ACETAMINOPHEN
     Dosage: 1 DF, AS NEEDED
  18. NOVORAPID [Concomitant]
     Active Substance: INSULIN ASPART
     Dosage: UNK
  19. BETNOVAT /00008501/ [Concomitant]
     Dosage: UNK
  20. ATENOLOL. [Concomitant]
     Active Substance: ATENOLOL
     Dosage: UNK
  21. AMLODIPINE BESILATE [Suspect]
     Active Substance: AMLODIPINE BESYLATE
     Dosage: UNK
     Dates: end: 201803
  22. PROPYDERM /00222401/ [Concomitant]
     Dosage: 1 DF, AS NEEDED
  23. ZOLPIDEM [Concomitant]
     Active Substance: ZOLPIDEM\ZOLPIDEM TARTRATE
     Dosage: 1 DF, AS NEEDED
  24. KALCIPOS [Concomitant]
     Active Substance: CALCIUM CARBONATE
     Dosage: UNK

REACTIONS (1)
  - Urticaria [Recovering/Resolving]

NARRATIVE: CASE EVENT DATE: 201803
